FAERS Safety Report 10205116 (Version 1)
Quarter: 2014Q2

REPORT INFORMATION
  Report Type: Spontaneous
  Country: TW (occurrence: TW)
  Receive Date: 20140529
  Receipt Date: 20140529
  Transmission Date: 20141212
  Serious: Yes (Hospitalization)
  Sender: FDA-Public Use
  Company Number: TW-SA-2014SA069457

PATIENT
  Age: 54 Year
  Sex: Male

DRUGS (6)
  1. LEUPROLIDE ACETATE [Suspect]
     Indication: PROSTATE CANCER
     Dosage: DEPOT INJECTION EVERY 4 WEEK
     Route: 065
  2. LEUPROLIDE ACETATE [Suspect]
     Indication: PROSTATE CANCER
     Dosage: INJECTION
     Route: 065
  3. PROPRANOLOL HYDROCHLORIDE [Suspect]
     Indication: EXTRAPYRAMIDAL DISORDER
     Route: 065
  4. PAROXETINE [Concomitant]
     Indication: MAJOR DEPRESSION
  5. LORAZEPAM [Concomitant]
     Indication: MAJOR DEPRESSION
  6. ZOLPIDEM [Concomitant]
     Indication: MAJOR DEPRESSION
     Dosage: AT NIGHT

REACTIONS (4)
  - Extrapyramidal disorder [Recovering/Resolving]
  - Stereotypy [Recovering/Resolving]
  - Restlessness [Recovering/Resolving]
  - Off label use [Unknown]
